FAERS Safety Report 11268102 (Version 3)
Quarter: 2016Q4

REPORT INFORMATION
  Report Type: Report from Study
  Country: US (occurrence: US)
  Receive Date: 20150714
  Receipt Date: 20161003
  Transmission Date: 20170206
  Serious: Yes (Hospitalization, Other)
  Sender: FDA-Public Use
  Company Number: US-ROCHE-1606291

PATIENT
  Age: 73 Year
  Sex: Female
  Weight: 74.4 kg

DRUGS (7)
  1. CARBOPLATIN. [Suspect]
     Active Substance: CARBOPLATIN
     Indication: OVARIAN CANCER
     Dosage: DATE OF LAST DOSE ADMINISTERED: 04/JUN/2015
     Route: 042
     Dates: start: 20150423
  2. BEVACIZUMAB [Suspect]
     Active Substance: BEVACIZUMAB
     Route: 042
     Dates: start: 20150423
  3. VELIPARIB [Suspect]
     Active Substance: VELIPARIB
     Dosage: RECEIVED ON 14/MAY/2015,  04/JUN/2015
     Route: 048
     Dates: start: 20150423
  4. PACLITAXEL. [Suspect]
     Active Substance: PACLITAXEL
     Indication: OVARIAN CANCER
     Dosage: FREQUENCY: OVER 3 HRS ON DAY 1?DATE OF LAST DOSE ADMINISTERED: 04/JUN/2015
     Route: 042
     Dates: start: 20150423
  5. BEVACIZUMAB [Suspect]
     Active Substance: BEVACIZUMAB
     Indication: OVARIAN CANCER
     Dosage: OVER 30-90 MINS. ON DAY 1?DATE OF LAST DOSE ADMINISTERED: 04/JUN/2015
     Route: 042
     Dates: start: 20150602
  6. VELIPARIB [Suspect]
     Active Substance: VELIPARIB
     Indication: OVARIAN CANCER
     Dosage: DATE OF LAST DOSE ADMINISTERED: 04/JUN/2015
     Route: 048
     Dates: start: 20150421
  7. BEVACIZUMAB [Suspect]
     Active Substance: BEVACIZUMAB
     Dosage: RECEIVED ON 04/JUN/2015
     Route: 042
     Dates: start: 20150514

REACTIONS (8)
  - Haematoma [Not Recovered/Not Resolved]
  - Intra-abdominal haemorrhage [Not Recovered/Not Resolved]
  - Anaemia [Unknown]
  - Neutrophil count decreased [Unknown]
  - Wound dehiscence [Not Recovered/Not Resolved]
  - Large intestine perforation [Recovering/Resolving]
  - White blood cell count decreased [Unknown]
  - Hypocalcaemia [Recovering/Resolving]

NARRATIVE: CASE EVENT DATE: 20150607
